FAERS Safety Report 8477191 (Version 2)
Quarter: 2013Q4

REPORT INFORMATION
  Report Type: Spontaneous
  Country: US (occurrence: US)
  Receive Date: 20120326
  Receipt Date: 20131009
  Transmission Date: 20140711
  Serious: Yes (Other)
  Sender: FDA-Public Use
  Company Number: US-BAYER-2012-026892

PATIENT
  Age: 65 Year
  Sex: Female
  Weight: 85 kg

DRUGS (8)
  1. BAYER GENUINE ASPIRIN ORIGINAL STRENGTH [Suspect]
     Indication: PRODUCT USED FOR UNKNOWN INDICATION
     Dosage: UNK
  2. PROTONIX [Suspect]
     Indication: HIATUS HERNIA
     Dosage: DAILY DOSE 40 MG
  3. PROTONIX [Suspect]
     Indication: GASTROOESOPHAGEAL REFLUX DISEASE
  4. PROCARDIA XL [Concomitant]
     Indication: HYPERTENSION
     Dosage: UNK
  5. DIOVAN [Concomitant]
     Indication: HYPERTENSION
     Dosage: 160 MG, UNK
  6. SYNTHROID [Concomitant]
     Indication: THYROID DISORDER
     Dosage: 150 ?G, UNK
  7. PRAVASTATIN [Concomitant]
     Indication: BLOOD CHOLESTEROL INCREASED
     Dosage: 40 MG, UNK
  8. WARFARIN [Concomitant]
     Indication: ANTICOAGULANT THERAPY
     Dosage: 5 MG, UNK

REACTIONS (11)
  - Gastric haemorrhage [Unknown]
  - Cardiac operation [Unknown]
  - Myocardial infarction [None]
  - Diabetic neuropathy [None]
  - Hypertension [None]
  - Blood cholesterol increased [None]
  - Pain [None]
  - Insomnia [None]
  - Nervousness [None]
  - Weight abnormal [None]
  - Memory impairment [None]
